FAERS Safety Report 9396042 (Version 1)
Quarter: 2013Q3

REPORT INFORMATION
  Report Type: Spontaneous
  Country: DK (occurrence: GB)
  Receive Date: 20130711
  Receipt Date: 20130711
  Transmission Date: 20140515
  Serious: Yes (Other)
  Sender: FDA-Public Use
  Company Number: GB-FRI-1000046558

PATIENT
  Age: 38 Year
  Sex: Female
  Weight: 107.7 kg

DRUGS (4)
  1. CITALOPRAM [Suspect]
     Dosage: 30 MG
     Route: 048
     Dates: start: 2011
  2. CLOZARIL [Suspect]
     Indication: SCHIZOPHRENIA, PARANOID TYPE
     Route: 048
     Dates: start: 20010701, end: 2008
  3. CLOZARIL [Suspect]
     Dosage: 200 MG
     Route: 048
     Dates: start: 2008
  4. HYOSCINE HYDROBROMIDE [Suspect]
     Indication: SALIVARY HYPERSECRETION
     Dosage: 300 MG

REACTIONS (1)
  - Haemoglobin decreased [Not Recovered/Not Resolved]
